FAERS Safety Report 6730815-6 (Version None)
Quarter: 2010Q2

REPORT INFORMATION
  Report Type: 
  Country: None (occurrence: None)
  Receive Date: 20100518
  Receipt Date: 20100414
  Transmission Date: 20101027
  Serious: Yes (Hospitalization, Other)
  Sender: FDA-Public Use
  Company Number: US-BAXTER-2009BH001346

PATIENT
  Age: 44 Year
  Sex: Male
  Weight: 102 kg

DRUGS (14)
  1. HEPARIN SODIUM INJECTION [Suspect]
     Indication: CATHETERISATION CARDIAC
     Route: 042
     Dates: start: 20071218
  2. HEPARIN SODIUM INJECTION [Suspect]
     Indication: CORONARY ARTERY BYPASS
     Route: 042
     Dates: start: 20071218
  3. LISINOPRIL [Concomitant]
     Indication: DRUG USE FOR UNKNOWN INDICATION
     Route: 065
  4. PRILOSEC [Concomitant]
     Indication: DRUG USE FOR UNKNOWN INDICATION
     Route: 065
  5. ASPIRIN [Concomitant]
     Indication: DRUG USE FOR UNKNOWN INDICATION
     Route: 065
  6. HYDROXYZINE [Concomitant]
     Indication: DRUG USE FOR UNKNOWN INDICATION
     Route: 065
  7. LIPITOR [Concomitant]
     Indication: DRUG USE FOR UNKNOWN INDICATION
     Route: 065
  8. ZETIA [Concomitant]
     Indication: DRUG USE FOR UNKNOWN INDICATION
     Route: 065
  9. PLAVIX [Concomitant]
     Indication: DRUG USE FOR UNKNOWN INDICATION
     Route: 065
  10. FENOFIBRATE [Concomitant]
     Indication: DRUG USE FOR UNKNOWN INDICATION
     Route: 065
  11. TOPROL-XL [Concomitant]
     Indication: DRUG USE FOR UNKNOWN INDICATION
     Route: 065
  12. POTASSIUM [Concomitant]
     Indication: DRUG USE FOR UNKNOWN INDICATION
     Route: 065
  13. LASIX [Concomitant]
     Indication: DRUG USE FOR UNKNOWN INDICATION
     Route: 065
  14. NITROGLYCERIN [Concomitant]
     Indication: CATHETERISATION CARDIAC
     Route: 041
     Dates: start: 20071218, end: 20071218

REACTIONS (27)
  - ABDOMINAL PAIN [None]
  - AMNESIA [None]
  - ASTHENIA [None]
  - BLINDNESS UNILATERAL [None]
  - BLOOD PRESSURE DECREASED [None]
  - CEREBROVASCULAR ACCIDENT [None]
  - CHEST PAIN [None]
  - CHILLS [None]
  - ENTEROBACTER INFECTION [None]
  - ENTEROCOCCAL INFECTION [None]
  - ERYTHEMA [None]
  - HEADACHE [None]
  - HEART RATE INCREASED [None]
  - HYPERHIDROSIS [None]
  - HYPERSENSITIVITY [None]
  - INFARCTION [None]
  - NAUSEA [None]
  - ORGAN FAILURE [None]
  - PHARYNGEAL OEDEMA [None]
  - PNEUMONIA [None]
  - PSEUDOMONAS INFECTION [None]
  - PYREXIA [None]
  - SHOCK [None]
  - SYNCOPE [None]
  - THROMBOCYTOPENIA [None]
  - VENTRICULAR FIBRILLATION [None]
  - VOMITING [None]
